FAERS Safety Report 7317479-8 (Version None)
Quarter: 2011Q1

REPORT INFORMATION
  Report Type: 
  Country: None (occurrence: None)
  Receive Date: 20110226
  Receipt Date: 20101109
  Transmission Date: 20110831
  Serious: No
  Sender: FDA-Public Use
  Company Number: US-ALLERGAN-1014481US

PATIENT
  Age: 69 Year
  Sex: Female

DRUGS (1)
  1. BOTOXA? [Suspect]
     Indication: BLEPHAROSPASM
     Dosage: 50 UNITS, SINGLE
     Route: 030
     Dates: start: 20101011, end: 20101011

REACTIONS (7)
  - NERVOUSNESS [None]
  - ASTHENIA [None]
  - VOMITING [None]
  - INFLUENZA [None]
  - HEADACHE [None]
  - EYELID PTOSIS [None]
  - VISION BLURRED [None]
